FAERS Safety Report 8334430 (Version 2)
Quarter: 2012Q4

REPORT INFORMATION
  Report Type: Spontaneous
  Country: GB (occurrence: None)
  Receive Date: 20120104
  Receipt Date: 20120813
  Transmission Date: 20130627
  Serious: Yes (Hospitalization)
  Sender: FDA-Public Use
  Company Number: EU-2011-10476

PATIENT
  Age: 66 Year
  Sex: Male
  Weight: 89 kg

DRUGS (13)
  1. SAMSCA [Suspect]
     Indication: HYPONATRAEMIA
     Dosage: SEE IMAGE
     Route: 048
     Dates: start: 20110421, end: 20110518
  2. SAMSCA [Suspect]
     Indication: HYPONATRAEMIA
     Dosage: SEE IMAGE
     Route: 048
     Dates: start: 20110421, end: 20110518
  3. SAMSCA [Suspect]
     Indication: HYPONATRAEMIA
     Dosage: SEE IMAGE
     Route: 048
     Dates: start: 20111204
  4. SAMSCA [Suspect]
     Indication: HYPONATRAEMIA
     Dosage: SEE IMAGE
     Route: 048
     Dates: start: 20111204
  5. SAMSCA [Suspect]
     Indication: HYPONATRAEMIA
     Dosage: SEE IMAGE
     Route: 048
     Dates: start: 20111114, end: 20111203
  6. SAMSCA [Suspect]
     Indication: HYPONATRAEMIA
     Dosage: SEE IMAGE
     Route: 048
     Dates: start: 20111114, end: 20111203
  7. SAMSCA [Suspect]
     Indication: HYPONATRAEMIA
     Dosage: SEE IMAGE
     Route: 048
     Dates: start: 20110531, end: 20111114
  8. SAMSCA [Suspect]
     Indication: HYPONATRAEMIA
     Dosage: SEE IMAGE
     Route: 048
     Dates: start: 20110531, end: 20111114
  9. METFORMIN HYDROCHLORIDE [Concomitant]
  10. INSULIN LANTUS (INSULIN GLARGINE) [Concomitant]
  11. NOVOLOG [Concomitant]
  12. AMITRIPTYLINE HYDROCHLORIDE [Concomitant]
  13. DILTIAZEM HYDROCHLORIDE [Concomitant]

REACTIONS (4)
  - Hyponatraemia [None]
  - Neoplasm progression [None]
  - Small cell lung cancer [None]
  - Malignant neoplasm progression [None]
